FAERS Safety Report 17340063 (Version 1)
Quarter: 2020Q1

REPORT INFORMATION
  Report Type: Spontaneous
  Country: US (occurrence: US)
  Receive Date: 20200129
  Receipt Date: 20200129
  Transmission Date: 20200409
  Serious: No
  Sender: FDA-Public Use
  Company Number: US-ALLERGAN-1923299US

PATIENT
  Age: 32 Year
  Sex: Female

DRUGS (1)
  1. BOTOX COSMETIC [Suspect]
     Active Substance: ONABOTULINUMTOXINA
     Indication: SKIN WRINKLING
     Dosage: 16 UNITS, SINGLE
     Dates: start: 20190412, end: 20190412

REACTIONS (3)
  - Headache [Unknown]
  - Therapeutic response decreased [Unknown]
  - Tension headache [Unknown]

NARRATIVE: CASE EVENT DATE: 20190412
